FAERS Safety Report 16077436 (Version 2)
Quarter: 2019Q2

REPORT INFORMATION
  Report Type: Report from Study
  Country: US (occurrence: US)
  Receive Date: 20190315
  Receipt Date: 20190528
  Transmission Date: 20190711
  Serious: Yes (Hospitalization)
  Sender: FDA-Public Use
  Company Number: PHHO2019US001172

PATIENT
  Age: 69 Year
  Sex: Female
  Weight: 62 kg

DRUGS (2)
  1. KISQALI [Suspect]
     Active Substance: RIBOCICLIB
     Indication: NEOPLASM
     Dosage: 400 MG, QD
     Route: 048
     Dates: start: 20190110
  2. GSK1120212 [Suspect]
     Active Substance: TRAMETINIB
     Indication: NEOPLASM
     Dosage: 1 MG, QD
     Route: 048
     Dates: start: 20190103

REACTIONS (2)
  - Vomiting [Recovered/Resolved]
  - Nausea [Recovered/Resolved]

NARRATIVE: CASE EVENT DATE: 20190119
